FAERS Safety Report 18142378 (Version 1)
Quarter: 2020Q3

REPORT INFORMATION
  Report Type: Spontaneous
  Country: CN (occurrence: CN)
  Receive Date: 20200812
  Receipt Date: 20200812
  Transmission Date: 20201103
  Serious: Yes (Other)
  Sender: FDA-Public Use
  Company Number: CN-BAYER-2020-166334

PATIENT
  Age: 85 Year
  Sex: Female
  Weight: 50 kg

DRUGS (1)
  1. CIPROBAY [CIPROFLOXACIN BETAIN] [Suspect]
     Active Substance: CIPROFLOXACIN
     Indication: PNEUMONIA
     Dosage: 0.4 G, TID
     Route: 041
     Dates: start: 20200727, end: 20200731

REACTIONS (3)
  - Aphasia [None]
  - Blood creatine phosphokinase increased [Recovering/Resolving]
  - Dementia [None]

NARRATIVE: CASE EVENT DATE: 20200730
